FAERS Safety Report 4597738-2 (Version None)
Quarter: 2005Q1

REPORT INFORMATION
  Report Type: 
  Country: None (occurrence: None)
  Receive Date: 20050303
  Receipt Date: 20050119
  Transmission Date: 20050727
  Serious: Yes (Death, Hospitalization)
  Sender: FDA-Public Use
  Company Number: NL-MERCK-0501NLD00031

PATIENT
  Age: 70 Year
  Sex: Female

DRUGS (8)
  1. PRINIVIL [Suspect]
     Route: 065
  2. TRAMADOL HYDROCHLORIDE [Concomitant]
     Route: 065
  3. BUMETANIDE [Concomitant]
     Route: 065
  4. BISOPROLOL [Concomitant]
     Route: 065
  5. FERROUS FUMARATE [Concomitant]
     Route: 065
  6. DOMPERIDONE [Concomitant]
     Route: 065
  7. BISACODYL [Concomitant]
     Route: 065
  8. DIGOXIN [Suspect]
     Route: 065

REACTIONS (7)
  - CARDIOACTIVE DRUG LEVEL ABOVE THERAPEUTIC [None]
  - CHEST DISCOMFORT [None]
  - CHEST PAIN [None]
  - CONSTIPATION [None]
  - DEATH [None]
  - GASTRIC DISORDER [None]
  - THERAPEUTIC AGENT TOXICITY [None]
